FAERS Safety Report 7939536 (Version 2)
Quarter: 2014Q1

REPORT INFORMATION
  Report Type: Spontaneous
  Country: US (occurrence: US)
  Receive Date: 20110511
  Receipt Date: 20140122
  Transmission Date: 20141002
  Serious: Yes (Hospitalization)
  Sender: FDA-Public Use
  Company Number: US-RANBAXY-2011US-44057

PATIENT
  Age: 12 Year
  Sex: Female
  Weight: 64 kg

DRUGS (5)
  1. ACETAMINOPHEN [Suspect]
     Indication: SUICIDE ATTEMPT
     Dosage: UNK
     Route: 048
  2. PERACETAMOL/DIPHENHYDRAMINE [Suspect]
     Indication: SUICIDE ATTEMPT
     Dosage: UNK MG, UNK
     Route: 048
  3. CITALOPRAM [Concomitant]
     Indication: PRODUCT USED FOR UNKNOWN INDICATION
     Dosage: UNK
     Route: 065
  4. DEXTROAMPHETAMINE [Concomitant]
     Indication: PRODUCT USED FOR UNKNOWN INDICATION
     Dosage: UNK
     Route: 065
  5. RISPERIDONE [Concomitant]
     Indication: PRODUCT USED FOR UNKNOWN INDICATION
     Dosage: UNK
     Route: 065

REACTIONS (8)
  - Intentional overdose [Recovered/Resolved]
  - Hepatic failure [Recovered/Resolved]
  - Hepatic encephalopathy [Recovered/Resolved]
  - Intentional self-injury [Unknown]
  - Hypotension [Recovering/Resolving]
  - Hyperglycaemia [Unknown]
  - Haematemesis [Unknown]
  - Haemophilus infection [Unknown]
